FAERS Safety Report 7600411-7 (Version None)
Quarter: 2011Q2

REPORT INFORMATION
  Report Type: 
  Country: None (occurrence: None)
  Receive Date: 20110624
  Receipt Date: 20110209
  Transmission Date: 20111010
  Serious: Yes (Other)
  Sender: FDA-Public Use
  Company Number: US-JNJFOC-20110204022

PATIENT
  Age: 39 Year
  Sex: Male
  Weight: 113.3993 kg

DRUGS (2)
  1. PEPCID AC [Suspect]
     Indication: GASTROOESOPHAGEAL REFLUX DISEASE
     Dosage: 20 MG, 6 IN 1 DAY, ORAL, 20 MG, 2 IN 1 DAY, ORAL
     Route: 048
  2. PEPCID AC [Suspect]
     Indication: DYSPEPSIA
     Dosage: 20 MG, 6 IN 1 DAY, ORAL, 20 MG, 2 IN 1 DAY, ORAL
     Route: 048

REACTIONS (2)
  - DRUG EFFECT DECREASED [None]
  - OVERDOSE [None]
